FAERS Safety Report 4448505-1 (Version None)
Quarter: 2004Q3

REPORT INFORMATION
  Report Type: 
  Country: None (occurrence: None)
  Receive Date: 20040914
  Receipt Date: 20040902
  Transmission Date: 20050211
  Serious: Yes (Hospitalization)
  Sender: FDA-Public Use
  Company Number: JP-JNJFOC-20031005427

PATIENT
  Sex: Female
  Weight: 51.3 kg

DRUGS (8)
  1. REMICADE [Suspect]
     Route: 041
  2. REMICADE [Suspect]
     Indication: CROHN'S DISEASE
     Route: 041
  3. PENTASA [Concomitant]
     Route: 049
  4. ALFAROL [Concomitant]
     Route: 049
  5. ASPARA CA [Concomitant]
     Route: 049
  6. MIYA BM [Concomitant]
     Route: 065
  7. FOSAMAX [Concomitant]
     Route: 049
  8. AZATHIOPRINE [Concomitant]
     Route: 065

REACTIONS (3)
  - C-REACTIVE PROTEIN INCREASED [None]
  - INFECTION [None]
  - PYREXIA [None]
